FAERS Safety Report 8004139-3 (Version None)
Quarter: 2011Q4

REPORT INFORMATION
  Report Type: 
  Country: None (occurrence: None)
  Receive Date: 20111223
  Receipt Date: 20111209
  Transmission Date: 20120403
  Serious: Yes (Other)
  Sender: FDA-Public Use
  Company Number: BR-AMGEN-BRASP2011000632

PATIENT
  Age: 61 Year
  Sex: Female
  Weight: 70 kg

DRUGS (7)
  1. ETANERCEPT [Suspect]
     Indication: RHEUMATOID ARTHRITIS
     Dosage: 25 MG, 2 TIMES/WK
     Route: 058
     Dates: start: 20101207
  2. OVESTRION [Concomitant]
     Dosage: UNK UNK, 2 TIMES/WK
     Route: 067
     Dates: start: 20060101
  3. ARCOXIA [Concomitant]
     Indication: PAIN
     Dosage: 90 MG, UNK
  4. CHLOROQUINE [Concomitant]
     Indication: RHEUMATOID ARTHRITIS
     Dosage: UNK
  5. ASPIRIN [Concomitant]
     Dosage: UNK
     Dates: start: 20101101
  6. LANZ [Concomitant]
     Indication: GASTRITIS
     Dosage: UNK
     Dates: start: 20100101
  7. MELOXICAM [Concomitant]
     Indication: PAIN
     Dosage: UNK

REACTIONS (7)
  - ARTHRALGIA [None]
  - PAIN [None]
  - POOR QUALITY DRUG ADMINISTERED [None]
  - RHEUMATOID ARTHRITIS [None]
  - LISTLESS [None]
  - FATIGUE [None]
  - DYSPNOEA [None]
